FAERS Safety Report 14410663 (Version 1)
Quarter: 2018Q1

REPORT INFORMATION
  Report Type: Spontaneous
  Country: NO (occurrence: NO)
  Receive Date: 20180119
  Receipt Date: 20180119
  Transmission Date: 20180509
  Serious: Yes (Hospitalization)
  Sender: FDA-Public Use
  Company Number: NO-ALK-ABELLO A/S-2018AA000040

PATIENT

DRUGS (2)
  1. PLAQUENIL                          /00072602/ [Concomitant]
     Active Substance: HYDROXYCHLOROQUINE DIPHOSPHATE
     Indication: SYSTEMIC LUPUS ERYTHEMATOSUS
     Dosage: 200 MILLIGRAM
     Route: 048
     Dates: start: 201705
  2. GRAZAX [Suspect]
     Active Substance: PHLEUM PRATENSE POLLEN
     Indication: SEASONAL ALLERGY
     Dosage: UNK
     Route: 060
     Dates: start: 20160113, end: 20171219

REACTIONS (7)
  - Pyrexia [Unknown]
  - Abdominal pain [Unknown]
  - Lupus nephritis [Unknown]
  - Arthralgia [Unknown]
  - Contraindication to medical treatment [Unknown]
  - Nausea [Unknown]
  - Vomiting [Unknown]

NARRATIVE: CASE EVENT DATE: 201703
